FAERS Safety Report 13844652 (Version 1)
Quarter: 2017Q3

REPORT INFORMATION
  Report Type: Spontaneous
  Country: US (occurrence: US)
  Receive Date: 20170808
  Receipt Date: 20170808
  Transmission Date: 20171127
  Serious: Yes (Other)
  Sender: FDA-Public Use
  Company Number: US-BAYER-2017-145540

PATIENT
  Sex: Female

DRUGS (1)
  1. RID 1-2-3 SYSTEM [Suspect]
     Active Substance: PIPERONYL BUTOXIDE\PYRETHRUM EXTRACT
     Indication: LICE INFESTATION
     Dosage: UNK
     Route: 065
     Dates: start: 20170727

REACTIONS (6)
  - Incorrect drug administration duration [Not Recovered/Not Resolved]
  - Vomiting [Unknown]
  - Drug ineffective [Unknown]
  - Skin lesion [Unknown]
  - Diarrhoea [Unknown]
  - Poisoning [Unknown]
